FAERS Safety Report 18325167 (Version 2)
Quarter: 2020Q4

REPORT INFORMATION
  Report Type: Spontaneous
  Country: RO (occurrence: RO)
  Receive Date: 20200928
  Receipt Date: 20201020
  Transmission Date: 20210113
  Serious: Yes (Hospitalization, Other)
  Sender: FDA-Public Use
  Company Number: RO-SUN PHARMACEUTICAL INDUSTRIES LTD-2020RR-262128

PATIENT
  Age: 19 Year
  Sex: Female

DRUGS (10)
  1. NIFEDIPINE. [Suspect]
     Active Substance: NIFEDIPINE
     Dosage: 10 MILLIGRAM, UNK
     Route: 065
  2. MAGNESIUM SULPHATE [Suspect]
     Active Substance: MAGNESIUM SULFATE
     Dosage: 2 GRAM, BID
     Route: 065
  3. METHYLDOPA. [Suspect]
     Active Substance: METHYLDOPA
     Dosage: 250 MILLIGRAM, UNK
     Route: 065
  4. DEXAMETHASONE. [Suspect]
     Active Substance: DEXAMETHASONE
     Indication: ECLAMPSIA
     Dosage: 6 MILLIGRAM, UNK
     Route: 030
  5. NIFEDIPINE. [Suspect]
     Active Substance: NIFEDIPINE
     Indication: ECLAMPSIA
     Dosage: 10 MILLIGRAM, UNK
     Route: 065
  6. MAGNESIUM SULPHATE [Suspect]
     Active Substance: MAGNESIUM SULFATE
     Indication: ECLAMPSIA
     Dosage: 2 GRAM, BID
     Route: 065
  7. DEXAMETHASONE. [Suspect]
     Active Substance: DEXAMETHASONE
     Dosage: 6 MILLIGRAM, UNK
     Route: 030
  8. DIAZEPAM. [Suspect]
     Active Substance: DIAZEPAM
     Dosage: 5 MILLIGRAM, UNK
     Route: 030
  9. DIAZEPAM. [Suspect]
     Active Substance: DIAZEPAM
     Indication: GENERALISED TONIC-CLONIC SEIZURE
     Dosage: 5 MILLIGRAM, UNK
     Route: 030
  10. METHYLDOPA. [Suspect]
     Active Substance: METHYLDOPA
     Indication: ECLAMPSIA
     Dosage: 250 MILLIGRAM, UNK
     Route: 065

REACTIONS (2)
  - Exposure during pregnancy [Unknown]
  - Premature delivery [Unknown]
